FAERS Safety Report 11944622 (Version 2)
Quarter: 2016Q1

REPORT INFORMATION
  Report Type: Spontaneous
  Country: PL (occurrence: PL)
  Receive Date: 20160125
  Receipt Date: 20160216
  Transmission Date: 20160526
  Serious: Yes (Death, Hospitalization, Other)
  Sender: FDA-Public Use
  Company Number: PL-ASTELLAS-2016US002185

PATIENT
  Age: 58 Year
  Sex: Female

DRUGS (6)
  1. CYCLOSPORINE. [Concomitant]
     Active Substance: CYCLOSPORINE
     Indication: LUNG TRANSPLANT
     Route: 065
  2. PREDNISONE. [Concomitant]
     Active Substance: PREDNISONE
     Indication: LUNG TRANSPLANT
     Route: 065
  3. METHYLPREDNISOLONE. [Concomitant]
     Active Substance: METHYLPREDNISOLONE
     Indication: LUNG TRANSPLANT
     Dosage: UNK UNK, UNKNOWN FREQ.
     Route: 065
  4. MYCOPHENOLATE MOFETIL. [Concomitant]
     Active Substance: MYCOPHENOLATE MOFETIL
     Indication: LUNG TRANSPLANT
     Route: 065
  5. TACROLIMUS. [Suspect]
     Active Substance: TACROLIMUS
     Indication: LUNG TRANSPLANT
     Dosage: 0.5 MG, ONCE DAILY
     Route: 065
  6. PANTOPRAZOLE [Concomitant]
     Active Substance: PANTOPRAZOLE SODIUM
     Indication: PRODUCT USED FOR UNKNOWN INDICATION
     Dosage: UNK UNK, UNKNOWN FREQ.
     Route: 065

REACTIONS (28)
  - Hypoproteinaemia [Unknown]
  - Leukopenia [Unknown]
  - Anxiety disorder [Unknown]
  - Off label use [Unknown]
  - Moraxella infection [Unknown]
  - Sinusitis [Unknown]
  - Otitis media [Unknown]
  - Renal failure [Unknown]
  - Bronchitis [Unknown]
  - Acinetobacter infection [Unknown]
  - Lung transplant rejection [Unknown]
  - Diabetes mellitus [Unknown]
  - Corynebacterium infection [Unknown]
  - Escherichia urinary tract infection [Unknown]
  - Pseudomonas infection [Recovered/Resolved]
  - Depression [Unknown]
  - Electrolyte imbalance [Unknown]
  - Hypogammaglobulinaemia [Unknown]
  - Sepsis [Fatal]
  - Escherichia sepsis [Unknown]
  - Cytomegalovirus infection [Unknown]
  - Proteus infection [Unknown]
  - Aspergillus infection [Unknown]
  - Aural polyp [Unknown]
  - Traumatic haematoma [Unknown]
  - Candida infection [Unknown]
  - Klebsiella infection [Unknown]
  - Pulmonary embolism [Unknown]
